FAERS Safety Report 19202230 (Version 1)
Quarter: 2021Q2

REPORT INFORMATION
  Report Type: Spontaneous
  Country: GB (occurrence: GB)
  Receive Date: 20210430
  Receipt Date: 20210430
  Transmission Date: 20210717
  Serious: Yes (Hospitalization)
  Sender: FDA-Public Use
  Company Number: GB-SLATE RUN PHARMACEUTICALS-21GB000472

PATIENT

DRUGS (1)
  1. CINACALCET HYDROCHLORIDE. [Suspect]
     Active Substance: CINACALCET HYDROCHLORIDE
     Indication: HYPERCALCAEMIA
     Route: 065

REACTIONS (4)
  - Diffuse large B-cell lymphoma [Recovering/Resolving]
  - Hypercalcaemia [Unknown]
  - Treatment failure [Unknown]
  - Blood parathyroid hormone decreased [Unknown]
